FAERS Safety Report 7700075-8 (Version None)
Quarter: 2011Q3

REPORT INFORMATION
  Report Type: 
  Country: None (occurrence: None)
  Receive Date: 20110822
  Receipt Date: 20110815
  Transmission Date: 20111222
  Serious: Yes (Other)
  Sender: FDA-Public Use
  Company Number: US-JNJFOC-20110807281

PATIENT
  Sex: Female

DRUGS (3)
  1. SYNTHROID [Concomitant]
     Route: 065
  2. BACLOFEN [Concomitant]
     Route: 065
  3. ULTRAM [Suspect]
     Indication: PRODUCT USED FOR UNKNOWN INDICATION
     Route: 048
     Dates: start: 20110801

REACTIONS (2)
  - DELUSION [None]
  - AGITATION [None]
